FAERS Safety Report 10013615 (Version 1)
Quarter: 2014Q1

REPORT INFORMATION
  Report Type: Spontaneous
  Country: US (occurrence: US)
  Receive Date: 20140315
  Receipt Date: 20140315
  Transmission Date: 20141002
  Serious: No
  Sender: FDA-Public Use
  Company Number: US-009507513-1402USA012600

PATIENT
  Sex: Female

DRUGS (1)
  1. OXYTROL FOR WOMEN [Suspect]
     Indication: NOCTURIA
     Dosage: UNK, UNKNOWN
     Route: 062
     Dates: start: 201311

REACTIONS (5)
  - Hair texture abnormal [Not Recovered/Not Resolved]
  - Dry mouth [Not Recovered/Not Resolved]
  - Alopecia [Not Recovered/Not Resolved]
  - Incorrect drug administration duration [Unknown]
  - Drug ineffective [Unknown]
